FAERS Safety Report 4309851-5 (Version None)
Quarter: 2004Q1

REPORT INFORMATION
  Report Type: 
  Country: None (occurrence: None)
  Receive Date: 20040227
  Receipt Date: 20040128
  Transmission Date: 20041129
  Serious: No
  Sender: FDA-Public Use
  Company Number: FABR-10456

PATIENT
  Age: 34 Year
  Sex: Male
  Weight: 96 kg

DRUGS (2)
  1. FABRAZYME [Suspect]
     Indication: FABRY'S DISEASE
     Dosage: 1 MG/KG Q2WKS IV
     Dates: start: 20031124
  2. PREVACID [Concomitant]

REACTIONS (1)
  - DYSPEPSIA [None]
